FAERS Safety Report 8776504 (Version 1)
Quarter: 2012Q4

REPORT INFORMATION
  Report Type: 
  Country: US (occurrence: US)
  Receive Date: 20120910
  Receipt Date: 20120910
  Transmission Date: 20130627
  Serious: Yes (Other)
  Sender: FDA-Public Use
  Company Number: US-PFIZER INC-2012218844

PATIENT
  Age: 64 Year
  Sex: Female
  Weight: 52 kg

DRUGS (3)
  1. PREMARIN [Suspect]
     Indication: ENDOCRINE DISORDER
     Dosage: 1.25 mg, daily
     Route: 048
  2. PREMARIN [Suspect]
     Dosage: 1.25 mg, daily
     Route: 048
  3. NEURONTIN [Suspect]
     Indication: FIBROMYALGIA
     Dosage: 300 mg, 3x/day
     Dates: start: 2012

REACTIONS (1)
  - Urinary tract infection [Unknown]
